FAERS Safety Report 13214158 (Version 2)
Quarter: 2017Q2

REPORT INFORMATION
  Report Type: Report from Study
  Country: US (occurrence: US)
  Receive Date: 20170210
  Receipt Date: 20170511
  Transmission Date: 20170830
  Serious: Yes (Hospitalization, Other)
  Sender: FDA-Public Use
  Company Number: PHEH2014US015600

PATIENT
  Age: 20 Year
  Sex: Male

DRUGS (19)
  1. DORNASE ALFA [Concomitant]
     Active Substance: DORNASE ALFA
     Dosage: 25 ML, QD (1 MG/ML SOLUTION, 2.5 MG NEBULIZATION DAILY)
     Route: 055
  2. SODIUM CHLORIDE. [Concomitant]
     Active Substance: SODIUM CHLORIDE
     Indication: PRODUCT USED FOR UNKNOWN INDICATION
     Dosage: 1 DF, BID
     Route: 065
  3. CEFTAZIDIME. [Concomitant]
     Active Substance: CEFTAZIDIME
     Indication: PRODUCT USED FOR UNKNOWN INDICATION
     Dosage: 2 G, Q8H
     Route: 042
  4. TOBRAMYCIN. [Concomitant]
     Active Substance: TOBRAMYCIN
     Indication: PRODUCT USED FOR UNKNOWN INDICATION
     Dosage: 550 MG, QD
     Route: 042
  5. ADEKS [Concomitant]
     Indication: PRODUCT USED FOR UNKNOWN INDICATION
     Dosage: 1 DF, BID (TOOK AT BREAKFAST AND DINNER)
     Route: 048
  6. DORNASE ALFA [Concomitant]
     Active Substance: DORNASE ALFA
     Indication: PRODUCT USED FOR UNKNOWN INDICATION
     Dosage: 2.5 MG/ML, PRN
     Route: 055
  7. ORKAMBI [Concomitant]
     Active Substance: IVACAFTOR\LUMACAFTOR
     Indication: PRODUCT USED FOR UNKNOWN INDICATION
     Dosage: UNK UNK, QD
     Route: 048
  8. CIPRO [Concomitant]
     Active Substance: CIPROFLOXACIN HYDROCHLORIDE
     Indication: PRODUCT USED FOR UNKNOWN INDICATION
     Dosage: 750 MG, BID
     Route: 048
  9. MEPHYTON [Concomitant]
     Active Substance: PHYTONADIONE
     Indication: PRODUCT USED FOR UNKNOWN INDICATION
     Dosage: 5 MG, QD
     Route: 048
  10. ZENPEP [Concomitant]
     Active Substance: PANCRELIPASE AMYLASE\PANCRELIPASE LIPASE\PANCRELIPASE PROTEASE
     Indication: PRODUCT USED FOR UNKNOWN INDICATION
     Dosage: 8 DF (5 PILLS WITH MEALS AND 3 PILLS WITH SNACKS)
     Route: 048
  11. ZITHROMAX [Concomitant]
     Active Substance: AZITHROMYCIN DIHYDRATE
     Dosage: 500 MG, QD (MONDAY, WEDNESDAY, THURSDAY)
     Route: 048
  12. URSODIOL. [Concomitant]
     Active Substance: URSODIOL
     Indication: PRODUCT USED FOR UNKNOWN INDICATION
     Dosage: 1 DF, BID (TOOK AT BREAKFAST AND DINNER)
     Route: 048
  13. ZITHROMAX [Concomitant]
     Active Substance: AZITHROMYCIN DIHYDRATE
     Indication: PRODUCT USED FOR UNKNOWN INDICATION
     Dosage: 500 MG, UNK
     Route: 048
  14. FLINTSTONE VITAMINS [Concomitant]
     Indication: PRODUCT USED FOR UNKNOWN INDICATION
     Dosage: 1 DF, BID (TOOK AT BREAKFAST AND DINNER)
     Route: 048
  15. TOBI PODHALER [Suspect]
     Active Substance: TOBRAMYCIN
     Indication: CYSTIC FIBROSIS
     Dosage: 1 DF (300 MG/ML), BID (NEBULIZED)
     Route: 055
  16. TOBI PODHALER [Suspect]
     Active Substance: TOBRAMYCIN
     Indication: PSEUDOMONAS INFECTION
     Dosage: 4 CAPSULE, BID EVERY OTHER MONTH
     Route: 065
  17. PROAIR HFA [Concomitant]
     Active Substance: ALBUTEROL SULFATE
     Indication: PRODUCT USED FOR UNKNOWN INDICATION
     Dosage: 8.5 G, AS DIRECTED AS NEEDED FOR WHEEZE
     Route: 055
  18. CAYSTON [Concomitant]
     Active Substance: AZTREONAM
     Indication: PRODUCT USED FOR UNKNOWN INDICATION
     Dosage: 75 MG, TID (EVERY OTHER MONTH)
     Route: 048
  19. NOVOLOG [Concomitant]
     Active Substance: INSULIN ASPART
     Indication: PRODUCT USED FOR UNKNOWN INDICATION
     Dosage: 10 ML, (FLEX PEN 20/1WHEN YOU EAT OMNIPOD INSULIN PUMP
     Route: 058

REACTIONS (6)
  - Cystic fibrosis [Recovering/Resolving]
  - Bronchitis [Recovering/Resolving]
  - Pulmonary function test decreased [Recovering/Resolving]
  - Pneumothorax spontaneous [Unknown]
  - Cystic fibrosis related diabetes [Recovering/Resolving]
  - Pancreatic failure [Recovering/Resolving]

NARRATIVE: CASE EVENT DATE: 201603
